FAERS Safety Report 22399738 (Version 1)
Quarter: 2023Q2

REPORT INFORMATION
  Report Type: Spontaneous
  Country: PL (occurrence: PL)
  Receive Date: 20230602
  Receipt Date: 20230602
  Transmission Date: 20230722
  Serious: Yes (Other)
  Sender: FDA-Public Use
  Company Number: PL-BAXTER-2023BAX022930

PATIENT
  Age: 7 Year
  Sex: Female

DRUGS (17)
  1. DOXORUBICIN [Suspect]
     Active Substance: DOXORUBICIN
     Indication: Diffuse large B-cell lymphoma stage III
     Dosage: 60 MG/M2/DAY IN 1-H INFUSION, ON DAY 2 OF R-COPADM, TWO CYCLES
     Route: 065
  2. CYCLOPHOSPHAMIDE [Suspect]
     Active Substance: CYCLOPHOSPHAMIDE
     Indication: Diffuse large B-cell lymphoma stage III
     Dosage: 300 MG/M2/DOSE AS AN INFUSION OVER 15 MIN, ON DAY 1 OF PRE-PHASE COP, ONE CYCLE
     Route: 065
  3. CYCLOPHOSPHAMIDE [Suspect]
     Active Substance: CYCLOPHOSPHAMIDE
     Dosage: 200 (1ST R-COPADM)/250 (2ND R-COPADM) MG/M2 /DOSE EVERY 12 H AS AN INFUSION OVER 15 MIN, CONTINUE HY
     Route: 065
  4. VINCRISTINE [Suspect]
     Active Substance: VINCRISTINE
     Indication: Diffuse large B-cell lymphoma stage III
     Dosage: 1.0 MG/M2 (MAX SINGLE DOSE 2.0 MG/M2 ), ON DAY 1 OF PRE-PHASE COP, ONE CYCLE
     Route: 040
  5. VINCRISTINE [Suspect]
     Active Substance: VINCRISTINE
     Dosage: 2.0 MG/M2, ON DAY 1 OF R-COPADM, TWO CYCLES
     Route: 040
  6. PREDNISONE [Suspect]
     Active Substance: PREDNISONE
     Indication: Diffuse large B-cell lymphoma stage III
     Dosage: 60 MG/M2/DAY (DIVIDED INTO BID DOSES), ON DAY 1, 2, 3, 4, 5, 6, 7 OF PRE-PHASE COP, ONE CYCLE
     Route: 048
  7. PREDNISONE [Suspect]
     Active Substance: PREDNISONE
     Dosage: 60 MG/M2/DAY (DIVIDED INTO BID DOSES), ON DAY 1, 2, 3, 4, 5, 6 (TAIL TO ZERO OVER 3 DAYS) OF R-COPAD
     Route: 048
  8. METHOTREXATE [Suspect]
     Active Substance: METHOTREXATE
     Indication: Diffuse large B-cell lymphoma stage III
     Dosage: DAY 1 OF PRE-PHASE COP, ONE CYCLE
     Route: 037
  9. METHOTREXATE [Suspect]
     Active Substance: METHOTREXATE
     Dosage: 1.0 G/M2 INFUSION ON DAY 1 OF R-COPADM, TWO CYCLES
     Route: 042
  10. METHOTREXATE [Suspect]
     Active Substance: METHOTREXATE
     Dosage: ON DAY 2 OF R-COPADM, TWO CYCLES
     Route: 039
  11. DEXTROSE [Suspect]
     Active Substance: DEXTROSE\DEXTROSE MONOHYDRATE
     Indication: Medication dilution
     Dosage: 500 ML/M2 INFUSIONS ON DAY 1 OF R-COPADM, TWO CYCLES
     Route: 042
  12. HYDROCORTISONE [Suspect]
     Active Substance: HYDROCORTISONE
     Indication: Diffuse large B-cell lymphoma stage III
     Dosage: 5 MG + 15 MG IT INJECTION, DAY 1 OF PRE-PHASE COP, ONE CYCLE
     Route: 037
  13. HYDROCORTISONE [Suspect]
     Active Substance: HYDROCORTISONE
     Dosage: 5 MG + 15 MG IT INJECTION, ON DAY 2 OF R-COPADM, TWO CYCLES
     Route: 037
  14. RITUXIMAB [Suspect]
     Active Substance: RITUXIMAB
     Indication: Diffuse large B-cell lymphoma stage III
     Dosage: 375 MG/M2, ON DAY 1 OF R-COPADM, TWO CYCLES
     Route: 065
  15. LEUCOVORIN [Suspect]
     Active Substance: LEUCOVORIN
     Indication: Diffuse large B-cell lymphoma stage III
     Dosage: 15 MG/M2 EVERY 1 HOUR UNTIL MTX LEVEL WAS BELOW 0.15 MMOL/L (1.5X10-7 M), ON DAY 2, 3, 4 OF R-COPADM
     Route: 048
  16. AZITHROMYCIN [Concomitant]
     Active Substance: AZITHROMYCIN
     Indication: Antibiotic prophylaxis
     Route: 065
  17. OXYGEN [Concomitant]
     Active Substance: OXYGEN
     Indication: Bacterial infection
     Route: 065

REACTIONS (8)
  - Febrile neutropenia [Unknown]
  - Leukopenia [Unknown]
  - Thrombocytopenia [Unknown]
  - Disease recurrence [Unknown]
  - Oral disorder [Unknown]
  - Urinary tract infection [Unknown]
  - Anaemia [Unknown]
  - Hypertension [Unknown]
